FAERS Safety Report 22312106 (Version 2)
Quarter: 2024Q2

REPORT INFORMATION
  Report Type: Other
  Country: ZA (occurrence: None)
  Receive Date: 20230512
  Receipt Date: 20240612
  Transmission Date: 20240716
  Serious: Yes (Other)
  Sender: FDA-Public Use
  Company Number: ZA-ROCHE-3343298

PATIENT
  Sex: Female

DRUGS (1)
  1. OCREVUS [Suspect]
     Active Substance: OCRELIZUMAB
     Indication: Multiple sclerosis
     Dosage: THEREAFTER EVERY SIX MONTHS
     Route: 041
     Dates: start: 20211206

REACTIONS (4)
  - Demyelination [Unknown]
  - Cerebellar atrophy [Unknown]
  - Spinal meningeal cyst [Unknown]
  - Gliosis [Unknown]
